FAERS Safety Report 22638109 (Version 1)
Quarter: 2023Q2

REPORT INFORMATION
  Report Type: Report from Study
  Country: FR (occurrence: FR)
  Receive Date: 20230626
  Receipt Date: 20230626
  Transmission Date: 20230721
  Serious: Yes (Hospitalization)
  Sender: FDA-Public Use
  Company Number: FR-TAKEDA-FR201606347

PATIENT
  Age: 16 Year
  Sex: Male
  Weight: 29 kg

DRUGS (43)
  1. IDURSULFASE [Suspect]
     Active Substance: IDURSULFASE
     Indication: Mucopolysaccharidosis II
     Dosage: 0.61 MILLIGRAM/KILOGRAM, 1/WEEK
     Route: 042
     Dates: start: 20061206
  2. IDURSULFASE [Suspect]
     Active Substance: IDURSULFASE
     Dosage: 0.4 MILLIGRAM/KILOGRAM, 1/WEEK
     Route: 042
     Dates: start: 20070219
  3. IDURSULFASE [Suspect]
     Active Substance: IDURSULFASE
     Dosage: 0.62 MILLIGRAM/KILOGRAM, 1/WEEK
     Route: 042
     Dates: start: 20081211
  4. IDURSULFASE [Suspect]
     Active Substance: IDURSULFASE
     Dosage: 0.61 MILLIGRAM/KILOGRAM, 1/WEEK
     Route: 042
     Dates: start: 20091217
  5. IDURSULFASE [Suspect]
     Active Substance: IDURSULFASE
     Dosage: 0.62 MILLIGRAM/KILOGRAM, 1/WEEK
     Route: 042
     Dates: start: 20101021
  6. IDURSULFASE [Suspect]
     Active Substance: IDURSULFASE
     Dosage: 0.88 MILLIGRAM/KILOGRAM, 1/WEEK
     Route: 042
     Dates: start: 20111020
  7. IDURSULFASE [Suspect]
     Active Substance: IDURSULFASE
     Dosage: 0.91 MILLIGRAM/KILOGRAM, 1/WEEK
     Route: 042
     Dates: start: 20120503
  8. IDURSULFASE [Suspect]
     Active Substance: IDURSULFASE
     Dosage: 0.9 MILLIGRAM/KILOGRAM, 1/WEEK
     Route: 042
     Dates: start: 20130516, end: 20170704
  9. MELATONIN [Concomitant]
     Active Substance: MELATONIN
     Indication: Sleep disorder
     Dosage: UNK
     Route: 048
     Dates: start: 20050102, end: 20111020
  10. AMITRIPTYLINE HYDROCHLORIDE [Concomitant]
     Active Substance: AMITRIPTYLINE HYDROCHLORIDE
     Indication: Anxiolytic therapy
     Dosage: UNK
     Route: 042
     Dates: start: 20060201, end: 20170828
  11. ANAFRANIL [Concomitant]
     Active Substance: CLOMIPRAMINE HYDROCHLORIDE
     Indication: Neuralgia
     Dosage: UNK
     Route: 042
     Dates: start: 20060201, end: 20170828
  12. AMITRIPTYLINE [Concomitant]
     Active Substance: AMITRIPTYLINE
     Indication: Antidepressant therapy
     Dosage: UNK
     Route: 048
     Dates: start: 2007
  13. OMEPRAZOLE [Concomitant]
     Active Substance: OMEPRAZOLE
     Indication: Gastrointestinal disorder
     Dosage: UNK
     Route: 048
     Dates: start: 2007, end: 2010
  14. DEXCHLORPHENIRAMINE [Concomitant]
     Active Substance: DEXCHLORPHENIRAMINE
     Indication: Premedication
     Dosage: UNK
     Dates: start: 20081211
  15. CEFTRIAXONE SODIUM [Concomitant]
     Active Substance: CEFTRIAXONE SODIUM
     Indication: Otorrhoea
     Dosage: UNK
     Route: 048
     Dates: start: 20101004, end: 20101006
  16. LACTULOSE [Concomitant]
     Active Substance: LACTULOSE
     Indication: Gastrointestinal disorder
     Dosage: UNK
     Route: 048
     Dates: start: 20110901, end: 20120528
  17. DEXAMETHASONE SODIUM PHOSPHATE\NYSTATIN\OXYTETRACYCLINE\POLYMYXIN B SU [Concomitant]
     Active Substance: DEXAMETHASONE SODIUM PHOSPHATE\NYSTATIN\OXYTETRACYCLINE\POLYMYXIN B SULFATE
     Indication: Otitis media chronic
     Dosage: UNK
     Dates: start: 20111020, end: 20170828
  18. CHOLECALCIFEROL [Concomitant]
     Active Substance: CHOLECALCIFEROL
     Indication: Vitamin D deficiency
     Dosage: UNK
     Route: 048
     Dates: start: 20111020, end: 20111020
  19. PROPRANOLOL HYDROCHLORIDE [Concomitant]
     Active Substance: PROPRANOLOL HYDROCHLORIDE
     Indication: Hypertension
     Dosage: UNK
     Route: 048
     Dates: start: 20111020
  20. CHOLECALCIFEROL [Concomitant]
     Active Substance: CHOLECALCIFEROL
     Indication: Hypovitaminosis
     Dosage: UNK
     Route: 048
     Dates: start: 20120503
  21. POLYETHYLENE GLYCOL 4000 [Concomitant]
     Active Substance: POLYETHYLENE GLYCOL 4000
     Indication: Constipation
     Dosage: UNK
     Route: 048
     Dates: start: 20120529
  22. ACETAMINOPHEN [Concomitant]
     Active Substance: ACETAMINOPHEN
     Indication: Pain
     Dosage: UNK
     Route: 048
     Dates: start: 20150114, end: 20170828
  23. VALPROATE SODIUM [Concomitant]
     Active Substance: VALPROATE SODIUM
     Indication: Epilepsy
     Dosage: UNK
     Route: 042
     Dates: start: 20160108, end: 20170707
  24. NORMACOL [Concomitant]
     Active Substance: HERBALS\KARAYA GUM
     Indication: Constipation
     Dosage: UNK
     Route: 048
     Dates: start: 20170130, end: 20170828
  25. BIFONAZOLE [Concomitant]
     Active Substance: BIFONAZOLE
     Indication: Fungal infection
     Dosage: UNK
     Route: 061
     Dates: start: 20170130, end: 20180828
  26. Dexeryl [Concomitant]
     Indication: Fungal infection
     Dosage: UNK
     Route: 061
     Dates: start: 20170130, end: 20170828
  27. AMOROLFINE HYDROCHLORIDE [Concomitant]
     Active Substance: AMOROLFINE HYDROCHLORIDE
     Indication: Onychomycosis
     Dosage: UNK
     Route: 061
     Dates: start: 20170130, end: 20170828
  28. PROPRANOLOL [Concomitant]
     Active Substance: PROPRANOLOL HYDROCHLORIDE
     Indication: Hypertension
     Dosage: UNK
     Route: 048
     Dates: start: 20170612, end: 20170622
  29. MIDAZOLAM [Concomitant]
     Active Substance: MIDAZOLAM
     Indication: Anxiolytic therapy
     Dosage: UNK
     Route: 042
     Dates: start: 201707, end: 20170828
  30. VALIUM [Concomitant]
     Active Substance: DIAZEPAM
     Indication: Seizure
     Dosage: UNK
     Route: 054
     Dates: start: 20170706, end: 20170706
  31. AUGMENTIN [Concomitant]
     Active Substance: AMOXICILLIN\CLAVULANATE POTASSIUM
     Indication: Infection
     Dosage: UNK
     Route: 042
     Dates: start: 20170706, end: 20170710
  32. CALCIUM PHOSPHATE, DIBASIC, ANHYDROUS\MAGNESIUM GLYCEROPHOSPHATE\PHOSP [Concomitant]
     Active Substance: CALCIUM PHOSPHATE, DIBASIC, ANHYDROUS\MAGNESIUM GLYCEROPHOSPHATE\PHOSPHORIC ACID\SODIUM PHOSPHATE, D
     Indication: Hypercalciuria
     Dosage: UNK
     Route: 042
     Dates: start: 20170706, end: 20170828
  33. TRIMEBUTINE MALEATE [Concomitant]
     Active Substance: TRIMEBUTINE MALEATE
     Indication: Abdominal pain
     Dosage: UNK
     Route: 042
     Dates: start: 20170706, end: 20170828
  34. GLYCERIN [Concomitant]
     Active Substance: GLYCERIN
     Indication: Constipation
     Dosage: UNK
     Dates: start: 20170706, end: 20170828
  35. Spasfon [Concomitant]
     Indication: Abdominal pain
     Dosage: UNK
     Route: 048
     Dates: start: 20170706, end: 20170828
  36. FOSPHENYTOIN SODIUM [Concomitant]
     Active Substance: FOSPHENYTOIN SODIUM
     Indication: Seizure
     Dosage: UNK
     Route: 042
     Dates: start: 20170707, end: 20170728
  37. RIVOTRIL [Concomitant]
     Active Substance: CLONAZEPAM
     Indication: Seizure
     Dosage: UNK
     Route: 042
     Dates: start: 20170707, end: 20170828
  38. SCOPOLAMINE [Concomitant]
     Active Substance: SCOPOLAMINE
     Indication: Bronchitis
     Dosage: UNK
     Route: 042
     Dates: start: 20170707, end: 20170828
  39. FUROSEMIDE [Concomitant]
     Active Substance: FUROSEMIDE
     Indication: Bronchitis
     Dosage: UNK
     Route: 042
     Dates: start: 20170707, end: 20170828
  40. MORPHINE [Concomitant]
     Active Substance: MORPHINE
     Indication: Tachypnoea
     Dosage: UNK
     Dates: start: 20170707, end: 20170828
  41. SCOPOLAMINE [Concomitant]
     Active Substance: SCOPOLAMINE
     Indication: Bronchitis
     Dosage: UNK
     Route: 042
     Dates: start: 20170707, end: 20170828
  42. FLAGYL [Concomitant]
     Active Substance: METRONIDAZOLE\METRONIDAZOLE HYDROCHLORIDE
     Indication: Infection
     Dosage: UNK
     Route: 042
     Dates: start: 20170710, end: 20171013
  43. PIPERACILLIN SODIUM\TAZOBACTAM SODIUM [Concomitant]
     Active Substance: PIPERACILLIN SODIUM\TAZOBACTAM SODIUM
     Indication: Infection
     Dosage: UNK
     Route: 042
     Dates: start: 20170713, end: 20170731

REACTIONS (1)
  - Toothache [Recovered/Resolved]

NARRATIVE: CASE EVENT DATE: 20140520
